FAERS Safety Report 16291007 (Version 1)
Quarter: 2019Q2

REPORT INFORMATION
  Report Type: Spontaneous
  Country: SE (occurrence: SE)
  Receive Date: 20190509
  Receipt Date: 20190509
  Transmission Date: 20190711
  Serious: Yes (Hospitalization)
  Sender: FDA-Public Use
  Company Number: SE-PFIZER INC-2019195457

PATIENT
  Sex: Male

DRUGS (4)
  1. VALIUM [Suspect]
     Active Substance: DIAZEPAM
     Dosage: UNK
     Dates: start: 201706
  2. LOPERAMIDE [Suspect]
     Active Substance: LOPERAMIDE
     Dosage: UNK
     Dates: start: 201705, end: 201706
  3. LYRICA [Suspect]
     Active Substance: PREGABALIN
     Dosage: 900 MG, UNK
     Dates: start: 201706
  4. XANOR [Suspect]
     Active Substance: ALPRAZOLAM
     Dosage: UNK
     Dates: start: 201706

REACTIONS (3)
  - Hallucination [Unknown]
  - Drug abuse [Unknown]
  - Intentional overdose [Unknown]

NARRATIVE: CASE EVENT DATE: 20170606
